FAERS Safety Report 16636110 (Version 4)
Quarter: 2019Q4

REPORT INFORMATION
  Report Type: Spontaneous
  Country: US (occurrence: US)
  Receive Date: 20190726
  Receipt Date: 20191206
  Transmission Date: 20200122
  Serious: No
  Sender: FDA-Public Use
  Company Number: US-PFIZER INC-2019317370

PATIENT
  Age: 68 Year
  Sex: Male
  Weight: 111.1 kg

DRUGS (1)
  1. SILDENAFIL CITRATE. [Suspect]
     Active Substance: SILDENAFIL CITRATE
     Indication: SEXUAL ACTIVITY INCREASED
     Dosage: 100 MG, AS NEEDED

REACTIONS (1)
  - Drug ineffective [Unknown]
